FAERS Safety Report 8358838-4 (Version None)
Quarter: 2012Q2

REPORT INFORMATION
  Report Type: 
  Country: None (occurrence: None)
  Receive Date: 20120515
  Receipt Date: 20120508
  Transmission Date: 20120825
  Serious: Yes (Other)
  Sender: FDA-Public Use
  Company Number: US-AMGEN-USASP2012028991

PATIENT

DRUGS (1)
  1. ENBREL [Suspect]
     Dosage: 25 MG, UNK
     Route: 064
     Dates: start: 19990101, end: 20090101

REACTIONS (1)
  - PREMATURE BABY [None]
